FAERS Safety Report 6225676-8 (Version None)
Quarter: 2009Q2

REPORT INFORMATION
  Report Type: 
  Country: None (occurrence: None)
  Receive Date: 20090612
  Receipt Date: 20090430
  Transmission Date: 20091009
  Serious: No
  Sender: FDA-Public Use
  Company Number: US-ABBOTT-09P-163-0570902-00

PATIENT
  Sex: Female

DRUGS (6)
  1. HUMIRA [Suspect]
     Indication: PSORIASIS
     Route: 058
     Dates: start: 20070501
  2. METHOTREXATE [Concomitant]
     Indication: PSORIASIS
  3. IMITREX [Concomitant]
     Indication: MIGRAINE
  4. FLONASE [Concomitant]
     Indication: SEASONAL ALLERGY
     Route: 045
  5. SUDAFED 12 HOUR [Concomitant]
     Indication: SEASONAL ALLERGY
     Route: 048
  6. ZYBAN [Concomitant]
     Indication: EX-TOBACCO USER
     Route: 048

REACTIONS (1)
  - PERIODONTAL DISEASE [None]
